FAERS Safety Report 10684338 (Version 1)
Quarter: 2014Q4

REPORT INFORMATION
  Report Type: Spontaneous
  Country: US (occurrence: US)
  Receive Date: 20141231
  Receipt Date: 20141231
  Transmission Date: 20150529
  Serious: Yes (Other)
  Sender: FDA-Public Use
  Company Number: US-CIPLA LTD.-2014US02939

PATIENT
  Sex: Female

DRUGS (5)
  1. GEMCITABINE [Suspect]
     Active Substance: GEMCITABINE\GEMCITABINE HYDROCHLORIDE
     Dosage: 675 MG/M2, ON DAYS ONE AND EIGHT INTRAVENOUSLY OVER 90 MIN
     Route: 042
  2. GRANULOCYTE-COLONY STIMULATING FACTOR [Suspect]
     Active Substance: FILGRASTIM
     Indication: UTERINE LEIOMYOSARCOMA
     Dosage: 150 MCG/M2, ON DAYS NINE THROUGH 15
     Route: 058
  3. GEMCITABINE [Suspect]
     Active Substance: GEMCITABINE\GEMCITABINE HYDROCHLORIDE
     Indication: UTERINE LEIOMYOSARCOMA
     Dosage: 900 MG/M2, ON DAYS ONE AND EIGHT INTRAVENOUSLY OVER 90 MIN
     Route: 042
  4. DOCETAXEL. [Suspect]
     Active Substance: DOCETAXEL
     Indication: UTERINE LEIOMYOSARCOMA
     Dosage: 100 MG/M2, ON DAY EIGHT INTRAVENOUSLY OVER 1 H
     Route: 042
  5. PEGFILGRASTIM [Suspect]
     Active Substance: PEGFILGRASTIM
     Indication: UTERINE LEIOMYOSARCOMA
     Dosage: 6 MG, ON DAY NINE OR 10
     Route: 058

REACTIONS (1)
  - Musculoskeletal disorder [Unknown]
